FAERS Safety Report 4512366-2 (Version None)
Quarter: 2004Q4

REPORT INFORMATION
  Report Type: 
  Country: None (occurrence: None)
  Receive Date: 20041123
  Receipt Date: 20041111
  Transmission Date: 20050328
  Serious: Yes (Death, Hospitalization)
  Sender: FDA-Public Use
  Company Number: A-CH2004-07530

PATIENT
  Age: 39 Year
  Sex: Female

DRUGS (7)
  1. TRACLEER [Suspect]
     Indication: PULMONARY HYPERTENSION
     Dosage: SEE IMAGE
     Route: 048
     Dates: start: 20020704, end: 20021121
  2. TRACLEER [Suspect]
     Indication: PULMONARY HYPERTENSION
     Dosage: SEE IMAGE
     Route: 048
     Dates: start: 20021122, end: 20040513
  3. PHENPROCOUMON (PHENPROCOUMON) [Concomitant]
  4. TRAPIDIL (TRAPIDIL) [Concomitant]
  5. MOLSIDOMINE (MOLSIDOMINE) [Concomitant]
  6. ILOPROST(ILOPROST) [Concomitant]
  7. DIGOTOXIN (DIGOXITIN) [Concomitant]

REACTIONS (3)
  - HAEMOPTYSIS [None]
  - RIGHT VENTRICULAR FAILURE [None]
  - SEPSIS [None]
